FAERS Safety Report 16740149 (Version 1)
Quarter: 2019Q3

REPORT INFORMATION
  Report Type: Spontaneous
  Country: US (occurrence: US)
  Receive Date: 20190826
  Receipt Date: 20190826
  Transmission Date: 20191005
  Serious: Yes (Death, Hospitalization, Other)
  Sender: FDA-Public Use
  Company Number: US-ABBVIE-19K-163-2751998-00

PATIENT
  Age: 68 Year
  Sex: Male

DRUGS (1)
  1. HUMIRA [Suspect]
     Active Substance: ADALIMUMAB
     Indication: COLITIS ULCERATIVE
     Route: 058
     Dates: start: 201805

REACTIONS (7)
  - Wrong technique in product usage process [Unknown]
  - Back pain [Recovering/Resolving]
  - Myocardial infarction [Fatal]
  - Drug ineffective [Unknown]
  - Fall [Recovering/Resolving]
  - Needle issue [Unknown]
  - Spinal fracture [Recovering/Resolving]

NARRATIVE: CASE EVENT DATE: 2018
